FAERS Safety Report 5421022-8 (Version None)
Quarter: 2007Q3

REPORT INFORMATION
  Report Type: 
  Country: None (occurrence: None)
  Receive Date: 20070821
  Receipt Date: 20070814
  Transmission Date: 20080115
  Serious: Yes (Hospitalization)
  Sender: FDA-Public Use
  Company Number: HQWYE578316AUG07

PATIENT
  Sex: Female
  Weight: 84 kg

DRUGS (6)
  1. TYGACIL [Suspect]
     Indication: ABDOMINAL ABSCESS
     Route: 042
     Dates: start: 20070804
  2. TYGACIL [Suspect]
     Indication: SEPSIS
  3. DIFLUCAN [Concomitant]
     Indication: ABDOMINAL ABSCESS
     Route: 042
     Dates: start: 20070804
  4. DIFLUCAN [Concomitant]
     Indication: SEPSIS
  5. LEVAQUIN [Concomitant]
     Indication: ABDOMINAL ABSCESS
     Route: 042
     Dates: start: 20070804
  6. LEVAQUIN [Concomitant]
     Indication: SEPSIS

REACTIONS (2)
  - CENTRAL LINE INFECTION [None]
  - STAPHYLOCOCCAL INFECTION [None]
